FAERS Safety Report 7633306-3 (Version None)
Quarter: 2011Q3

REPORT INFORMATION
  Report Type: 
  Country: None (occurrence: None)
  Receive Date: 20110725
  Receipt Date: 20110719
  Transmission Date: 20111222
  Serious: Yes (Death)
  Sender: FDA-Public Use
  Company Number: FR-SANOFI-AVENTIS-2011SA046453

PATIENT
  Age: 85 Year
  Sex: Male

DRUGS (2)
  1. NEUPOGEN [Concomitant]
  2. TAXOTERE [Suspect]
     Indication: PROSTATE CANCER
     Route: 042

REACTIONS (1)
  - DEATH [None]
